FAERS Safety Report 9265630 (Version 2)
Quarter: 2013Q2

REPORT INFORMATION
  Report Type: Spontaneous
  Country: VE (occurrence: VE)
  Receive Date: 20130501
  Receipt Date: 20130507
  Transmission Date: 20140414
  Serious: Yes (Death)
  Sender: FDA-Public Use
  Company Number: VE-PFIZER INC-2013132518

PATIENT
  Age: 87 Year
  Sex: Female

DRUGS (1)
  1. LIPITOR [Suspect]
     Indication: CORONARY ARTERY OCCLUSION
     Dosage: 80 MG, DAILY
     Route: 048
     Dates: start: 2005

REACTIONS (4)
  - Infectious pleural effusion [Fatal]
  - Gastric neoplasm [Fatal]
  - Tumour perforation [Fatal]
  - Pulmonary infarction [Fatal]
